FAERS Safety Report 4756603-8 (Version None)
Quarter: 2005Q3

REPORT INFORMATION
  Report Type: 
  Country: None (occurrence: None)
  Receive Date: 20050830
  Receipt Date: 20041020
  Transmission Date: 20060218
  Serious: Yes (Death, Life-Threatening, Hospitalization, Other)
  Sender: FDA-Public Use
  Company Number: DE-MERCK-0410DEU00609

PATIENT
  Age: 74 Year
  Sex: Female
  Weight: 74 kg

DRUGS (12)
  1. VIOXX [Suspect]
     Indication: PAIN
     Route: 048
     Dates: end: 20040801
  2. VIOXX [Suspect]
     Route: 048
     Dates: start: 20010101
  3. VIOXX [Suspect]
     Route: 048
     Dates: start: 20031127, end: 20040701
  4. INSULIN [Concomitant]
     Indication: DIABETES MELLITUS
     Route: 065
     Dates: start: 19900101
  5. PREDNISONE [Concomitant]
     Route: 065
  6. ACETYLCYSTEINE [Concomitant]
     Route: 065
  7. ENALAPRIL MALEATE [Concomitant]
     Route: 065
  8. MORPHINE SULFATE [Concomitant]
     Route: 048
  9. DIPYRONE [Concomitant]
     Route: 065
  10. OXYCODONE HYDROCHLORIDE [Concomitant]
     Route: 065
  11. ISOSORBIDE DINITRATE [Concomitant]
     Route: 065
  12. VINORELBINE TARTRATE [Suspect]
     Indication: METASTATIC BRONCHIAL CARCINOMA
     Route: 065
     Dates: start: 20040601, end: 20040701

REACTIONS (24)
  - ABDOMINAL PAIN [None]
  - AGRANULOCYTOSIS [None]
  - BRONCHITIS [None]
  - CEREBROVASCULAR ACCIDENT [None]
  - CHRONIC OBSTRUCTIVE PULMONARY DISEASE [None]
  - CONFUSIONAL STATE [None]
  - CONSTIPATION [None]
  - DYSPNOEA [None]
  - FACIAL PARESIS [None]
  - FALL [None]
  - HEADACHE [None]
  - HEMIPARESIS [None]
  - HEPATIC FAILURE [None]
  - HYPERKALAEMIA [None]
  - INFECTION [None]
  - NAUSEA [None]
  - NEOPLASM [None]
  - NORMOCHROMIC NORMOCYTIC ANAEMIA [None]
  - ORAL CANDIDIASIS [None]
  - PAIN IN EXTREMITY [None]
  - PARAESTHESIA [None]
  - TRANSIENT ISCHAEMIC ATTACK [None]
  - VENOUS THROMBOSIS [None]
  - VOMITING [None]
